FAERS Safety Report 21849388 (Version 1)
Quarter: 2023Q1

REPORT INFORMATION
  Report Type: Spontaneous
  Country: CA (occurrence: CA)
  Receive Date: 20230111
  Receipt Date: 20230111
  Transmission Date: 20230418
  Serious: Yes (Disabling, Other)
  Sender: FDA-Public Use
  Company Number: CA-ELI_LILLY_AND_COMPANY-CA202212015125

PATIENT
  Age: 61 Year
  Sex: Female

DRUGS (2)
  1. DULOXETINE HYDROCHLORIDE [Suspect]
     Active Substance: DULOXETINE HYDROCHLORIDE
     Indication: Product used for unknown indication
     Dosage: 30 MG, DAILY
     Route: 065
     Dates: end: 20221124
  2. RITUXIMAB [Suspect]
     Active Substance: RITUXIMAB
     Indication: Systemic lupus erythematosus
     Dosage: 500 MG, SINGLE
     Route: 042
     Dates: start: 20220430

REACTIONS (10)
  - Spinal fracture [Unknown]
  - Pain [Unknown]
  - Influenza like illness [Not Recovered/Not Resolved]
  - Feeding disorder [Unknown]
  - Abdominal distension [Unknown]
  - Swelling [Unknown]
  - Diarrhoea haemorrhagic [Unknown]
  - Nausea [Unknown]
  - Asthenia [Not Recovered/Not Resolved]
  - Hypokinesia [Not Recovered/Not Resolved]

NARRATIVE: CASE EVENT DATE: 20220101
